FAERS Safety Report 6819902-1 (Version None)
Quarter: 2010Q3

REPORT INFORMATION
  Report Type: 
  Country: None (occurrence: None)
  Receive Date: 20100707
  Receipt Date: 20100628
  Transmission Date: 20110219
  Serious: Yes (Other)
  Sender: FDA-Public Use
  Company Number: AU-ROCHE-682832

PATIENT
  Sex: Male

DRUGS (2)
  1. ISOTRETINOIN [Suspect]
     Indication: ACNE
     Route: 065
     Dates: start: 20050922, end: 20060802
  2. ISOTRETINOIN [Suspect]
     Dosage: RESTARTED SECOND COURSE
     Route: 065
     Dates: start: 20070302, end: 20080801

REACTIONS (2)
  - ACNE [None]
  - NON-HODGKIN'S LYMPHOMA [None]
